FAERS Safety Report 26109819 (Version 1)
Quarter: 2025Q4

REPORT INFORMATION
  Report Type: Spontaneous
  Country: ID (occurrence: ID)
  Receive Date: 20251201
  Receipt Date: 20251201
  Transmission Date: 20260118
  Serious: Yes (Hospitalization, Other)
  Sender: PFIZER
  Company Number: ID-TAKEDA-2025TUS107260

PATIENT
  Age: 36 Year
  Sex: Male

DRUGS (1)
  1. BRENTUXIMAB VEDOTIN [Suspect]
     Active Substance: BRENTUXIMAB VEDOTIN
     Indication: Hodgkin^s disease recurrent
     Dosage: 1.8 MG/KG, CYCLIC
     Route: 065

REACTIONS (2)
  - Respiratory failure [Unknown]
  - Pneumonitis [Unknown]
